FAERS Safety Report 16881241 (Version 3)
Quarter: 2019Q4

REPORT INFORMATION
  Report Type: Spontaneous
  Country: DE (occurrence: DE)
  Receive Date: 20191003
  Receipt Date: 20191031
  Transmission Date: 20200122
  Serious: Yes (Life-Threatening, Hospitalization, Other)
  Sender: FDA-Public Use
  Company Number: DE-OTSUKA-2019_033918

PATIENT
  Age: 31 Year
  Sex: Male
  Weight: 110 kg

DRUGS (11)
  1. MIRTAZAPINE. [Concomitant]
     Active Substance: MIRTAZAPINE
     Indication: PRODUCT USED FOR UNKNOWN INDICATION
     Dosage: UNK
     Route: 065
  2. AMISULPRIDE [Concomitant]
     Active Substance: AMISULPRIDE
     Indication: SCHIZOPHRENIA
     Dosage: UNK
     Route: 065
  3. RISPERIDONE. [Suspect]
     Active Substance: RISPERIDONE
     Indication: SCHIZOPHRENIA
     Dosage: UNK
     Route: 065
  4. DOXEPIN [Suspect]
     Active Substance: DOXEPIN
     Indication: SCHIZOPHRENIA
     Dosage: UNK
     Route: 065
  5. ARIPIPRAZOLE. [Suspect]
     Active Substance: ARIPIPRAZOLE
     Indication: SCHIZOPHRENIA
     Dosage: UNK
     Route: 065
  6. CLOZAPINE. [Suspect]
     Active Substance: CLOZAPINE
     Indication: SCHIZOAFFECTIVE DISORDER
     Dosage: 100 MG, UNK
     Route: 065
  7. VENLAFAXINE [Suspect]
     Active Substance: VENLAFAXINE HYDROCHLORIDE
     Indication: SCHIZOAFFECTIVE DISORDER
     Dosage: 150 MG, UNK
     Route: 065
  8. LITHIUM. [Suspect]
     Active Substance: LITHIUM
     Indication: SCHIZOAFFECTIVE DISORDER
     Dosage: 900 MG, UNK
     Route: 065
  9. OLANZAPINE. [Concomitant]
     Active Substance: OLANZAPINE
     Indication: SCHIZOPHRENIA
     Dosage: UNK
     Route: 065
  10. VALPROIC ACID. [Suspect]
     Active Substance: VALPROIC ACID
     Indication: SCHIZOPHRENIA
     Dosage: UNK
     Route: 065
  11. DIPIPERON [Suspect]
     Active Substance: PIPAMPERONE
     Indication: SCHIZOPHRENIA
     Dosage: UNK
     Route: 065

REACTIONS (26)
  - Right ventricular dilatation [Unknown]
  - Chest pain [Recovering/Resolving]
  - Fatigue [Recovering/Resolving]
  - Inflammation [Unknown]
  - C-reactive protein increased [Unknown]
  - Cardiomyopathy [Unknown]
  - Dizziness [Unknown]
  - Pulmonary congestion [Unknown]
  - Left ventricular dilatation [Recovered/Resolved]
  - Therapeutic response decreased [Unknown]
  - Left ventricular dysfunction [Recovered/Resolved]
  - Cardiomegaly [Unknown]
  - Blood pressure systolic decreased [Recovered/Resolved]
  - Tachycardia [Unknown]
  - Drug ineffective [Unknown]
  - Left atrial dilatation [Unknown]
  - Antipsychotic drug level above therapeutic [Unknown]
  - Dyspnoea [Recovering/Resolving]
  - Cardiac failure [Recovering/Resolving]
  - Fibrosis [Unknown]
  - Cardiomyopathy [Recovered/Resolved]
  - Left ventricular enlargement [Recovered/Resolved]
  - Electrocardiogram QT prolonged [Unknown]
  - Oedema peripheral [Unknown]
  - Suicidal ideation [Unknown]
  - Hypertension [Unknown]
